FAERS Safety Report 6460492-3 (Version None)
Quarter: 2009Q4

REPORT INFORMATION
  Report Type: 
  Country: None (occurrence: None)
  Receive Date: 20091130
  Receipt Date: 20091117
  Transmission Date: 20100525
  Serious: No
  Sender: FDA-Public Use
  Company Number: CN-JNJFOC-20091105544

PATIENT
  Age: 73 Year
  Sex: Male
  Weight: 75 kg

DRUGS (2)
  1. DURAGESIC-100 [Suspect]
     Indication: CANCER PAIN
     Route: 062
     Dates: start: 20091113, end: 20091116
  2. UNKNOWN MEDICATION [Concomitant]
     Indication: HEPATIC NEOPLASM MALIGNANT

REACTIONS (3)
  - DECREASED APPETITE [None]
  - TREATMENT NONCOMPLIANCE [None]
  - VOMITING [None]
